FAERS Safety Report 18493723 (Version 1)
Quarter: 2020Q4

REPORT INFORMATION
  Report Type: Spontaneous
  Country: US (occurrence: US)
  Receive Date: 20201111
  Receipt Date: 20201111
  Transmission Date: 20210114
  Serious: No
  Sender: FDA-Public Use
  Company Number: US-ELI_LILLY_AND_COMPANY-US202010010844

PATIENT
  Age: 48 Year
  Sex: Female

DRUGS (1)
  1. EMGALITY [Suspect]
     Active Substance: GALCANEZUMAB-GNLM
     Indication: PRODUCT USED FOR UNKNOWN INDICATION
     Dosage: 1 DOSAGE FORM, UNKNOWN
     Route: 065

REACTIONS (11)
  - Tinnitus [Unknown]
  - Insomnia [Unknown]
  - Aphasia [Unknown]
  - Pain in extremity [Unknown]
  - Vertigo [Unknown]
  - Tremor [Unknown]
  - Palpitations [Unknown]
  - Exaggerated startle response [Unknown]
  - Chest discomfort [Unknown]
  - Muscular weakness [Unknown]
  - Anxiety [Unknown]

NARRATIVE: CASE EVENT DATE: 20201020
